FAERS Safety Report 6157502-X (Version None)
Quarter: 2009Q2

REPORT INFORMATION
  Report Type: 
  Country: None (occurrence: None)
  Receive Date: 20090416
  Receipt Date: 20090403
  Transmission Date: 20091009
  Serious: Yes (Other)
  Sender: FDA-Public Use
  Company Number: FR-GENENTECH-280946

PATIENT
  Sex: Female

DRUGS (2)
  1. XOLAIR [Suspect]
     Indication: ASTHMA
     Dosage: 225 MG, Q15D
  2. DERMATOLOGY TREATMENT [Suspect]

REACTIONS (2)
  - DERMATITIS EXFOLIATIVE [None]
  - DISCOMFORT [None]
